FAERS Safety Report 23058524 (Version 5)
Quarter: 2025Q3

REPORT INFORMATION
  Report Type: Report from Study
  Country: US (occurrence: US)
  Receive Date: 20231012
  Receipt Date: 20250917
  Transmission Date: 20251020
  Serious: Yes (Other)
  Sender: INCYTE
  Company Number: US-INCYTE CORPORATION-2023IN010580

PATIENT

DRUGS (3)
  1. JAKAFI [Suspect]
     Active Substance: RUXOLITINIB
     Indication: Chronic graft versus host disease
     Route: 065
  2. JAKAFI [Suspect]
     Active Substance: RUXOLITINIB
     Dosage: 10 MILLIGRAM, BID
     Route: 065
  3. JAKAFI [Suspect]
     Active Substance: RUXOLITINIB
     Route: 065

REACTIONS (17)
  - Mycobacterium avium complex infection [Not Recovered/Not Resolved]
  - Chronic graft versus host disease in lung [Not Recovered/Not Resolved]
  - Chronic graft versus host disease [Recovering/Resolving]
  - Arthralgia [Unknown]
  - Bone pain [Unknown]
  - Muscle spasms [Unknown]
  - Dry eye [Unknown]
  - Mobility decreased [Unknown]
  - Lung disorder [Not Recovered/Not Resolved]
  - Ill-defined disorder [Unknown]
  - Muscle fatigue [Unknown]
  - Skin tightness [Unknown]
  - Product availability issue [Unknown]
  - Fatigue [Not Recovered/Not Resolved]
  - Myalgia [Unknown]
  - Rash [Recovered/Resolved]
  - Condition aggravated [Recovering/Resolving]
